FAERS Safety Report 17721002 (Version 1)
Quarter: 2020Q2

REPORT INFORMATION
  Report Type: Spontaneous
  Country: US (occurrence: US)
  Receive Date: 20200428
  Receipt Date: 20200428
  Transmission Date: 20200714
  Serious: No
  Sender: FDA-Public Use
  Company Number: US-ROCHE-2335324

PATIENT
  Sex: Male

DRUGS (1)
  1. AVASTIN [Suspect]
     Active Substance: BEVACIZUMAB
     Indication: BRAIN NEOPLASM MALIGNANT
     Dosage: FOR 16 MONTHS
     Route: 042

REACTIONS (4)
  - Blood pressure increased [Unknown]
  - Off label use [Unknown]
  - Product use in unapproved indication [Unknown]
  - Protein urine present [Unknown]
